FAERS Safety Report 4889741-X (Version None)
Quarter: 2006Q1

REPORT INFORMATION
  Report Type: 
  Country: None (occurrence: None)
  Receive Date: 20060123
  Receipt Date: 20060123
  Transmission Date: 20060701
  Serious: Yes (Hospitalization, Other)
  Sender: FDA-Public Use
  Company Number: None

PATIENT
  Age: 26 Month
  Sex: Male
  Weight: 15.4223 kg

DRUGS (1)
  1. ANACIN PAIN RELIEVER (ASA AND CAFFEINE) [Suspect]
     Indication: HEADACHE
     Dosage: PO
     Route: 048
     Dates: start: 20060120, end: 20060120

REACTIONS (2)
  - ACCIDENTAL DRUG INTAKE BY CHILD [None]
  - PHARMACEUTICAL PRODUCT COMPLAINT [None]
